FAERS Safety Report 11011545 (Version 4)
Quarter: 2017Q2

REPORT INFORMATION
  Report Type: Spontaneous
  Country: US (occurrence: US)
  Receive Date: 20150410
  Receipt Date: 20170530
  Transmission Date: 20170829
  Serious: Yes (Other)
  Sender: FDA-Public Use
  Company Number: US-JNJFOC-20130807319

PATIENT
  Age: 74 Year
  Sex: Female
  Weight: 59.42 kg

DRUGS (3)
  1. REMICADE [Suspect]
     Active Substance: INFLIXIMAB
     Indication: RHEUMATOID ARTHRITIS
     Route: 042
     Dates: start: 20130702
  2. REMICADE [Suspect]
     Active Substance: INFLIXIMAB
     Indication: RHEUMATOID ARTHRITIS
     Route: 042
     Dates: start: 20130813
  3. REMICADE [Suspect]
     Active Substance: INFLIXIMAB
     Indication: RHEUMATOID ARTHRITIS
     Route: 042
     Dates: start: 20120105

REACTIONS (12)
  - Dizziness [Unknown]
  - Aspiration [Unknown]
  - Breath sounds abnormal [Unknown]
  - Flushing [Recovered/Resolved]
  - Infusion related reaction [Unknown]
  - Dyspnoea [Unknown]
  - Productive cough [Unknown]
  - Hypertension [Unknown]
  - Chills [Unknown]
  - Drug effect incomplete [Unknown]
  - Wheezing [Unknown]
  - Chest discomfort [Recovering/Resolving]

NARRATIVE: CASE EVENT DATE: 2013
